FAERS Safety Report 6210647-8 (Version None)
Quarter: 2009Q2

REPORT INFORMATION
  Report Type: 
  Country: None (occurrence: None)
  Receive Date: 20090529
  Receipt Date: 20090529
  Transmission Date: 20091009
  Serious: Yes (Death)
  Sender: FDA-Public Use
  Company Number: None

PATIENT
  Sex: Male

DRUGS (2)
  1. TARCEVA [Suspect]
  2. FASLODEX [Suspect]

REACTIONS (1)
  - MYOCARDIAL INFARCTION [None]
